FAERS Safety Report 10533987 (Version 2)
Quarter: 2014Q4

REPORT INFORMATION
  Report Type: Report from Study
  Country: US (occurrence: US)
  Receive Date: 20141022
  Receipt Date: 20141203
  Transmission Date: 20150529
  Serious: Yes (Other)
  Sender: FDA-Public Use
  Company Number: US-ELI_LILLY_AND_COMPANY-US201410003987

PATIENT
  Sex: Female
  Weight: 50.34 kg

DRUGS (5)
  1. KEPPRA [Concomitant]
     Active Substance: LEVETIRACETAM
     Indication: PRODUCT USED FOR UNKNOWN INDICATION
     Dosage: 500 MG, BID
     Route: 065
  2. TERIPARATIDE [Suspect]
     Active Substance: TERIPARATIDE
     Indication: OSTEOPOROSIS
     Dosage: UNK, QD
     Route: 058
     Dates: start: 20140815, end: 20141003
  3. SYNTHROID [Concomitant]
     Active Substance: LEVOTHYROXINE SODIUM
     Indication: PRODUCT USED FOR UNKNOWN INDICATION
     Route: 065
  4. PAXIL [Concomitant]
     Active Substance: PAROXETINE HYDROCHLORIDE
     Indication: PRODUCT USED FOR UNKNOWN INDICATION
     Route: 065
  5. CITRACAL PLUS WITH MAGNESIUM [Concomitant]
     Indication: BONE DISORDER
     Route: 065

REACTIONS (9)
  - Dysphagia [Recovered/Resolved]
  - Tremor [Recovered/Resolved]
  - Tongue oedema [Recovered/Resolved]
  - Muscle twitching [Unknown]
  - Chest pain [Recovered/Resolved]
  - Oropharyngeal pain [Not Recovered/Not Resolved]
  - Arthralgia [Unknown]
  - Pharyngeal oedema [Recovered/Resolved]
  - Nightmare [Unknown]
